FAERS Safety Report 5209666-X (Version None)
Quarter: 2007Q1

REPORT INFORMATION
  Report Type: 
  Country: None (occurrence: None)
  Receive Date: 20070116
  Receipt Date: 20070108
  Transmission Date: 20070707
  Serious: Yes (Death, Hospitalization, Other)
  Sender: FDA-Public Use
  Company Number: CH-PFIZER INC-2006129519

PATIENT
  Sex: Female

DRUGS (1)
  1. FRAGMIN [Suspect]
     Indication: DEEP VEIN THROMBOSIS
     Route: 058

REACTIONS (3)
  - CARDIAC FAILURE [None]
  - HAEMATOMA [None]
  - RECTAL HAEMORRHAGE [None]
